FAERS Safety Report 6607685-X (Version None)
Quarter: 2010Q1

REPORT INFORMATION
  Report Type: 
  Country: None (occurrence: None)
  Receive Date: 20100301
  Receipt Date: 20100217
  Transmission Date: 20100710
  Serious: Yes (Death)
  Sender: FDA-Public Use
  Company Number: CA-ELI_LILLY_AND_COMPANY-CA201002004697

PATIENT
  Age: 16 Year
  Sex: Male

DRUGS (2)
  1. ZYPREXA [Suspect]
     Indication: BIPOLAR DISORDER
     Dosage: 25 MG, DAILY (1/D)
  2. RITALIN [Concomitant]

REACTIONS (7)
  - ARRHYTHMIA [None]
  - CARDIAC MURMUR [None]
  - DRUG LEVEL INCREASED [None]
  - ELECTROCARDIOGRAM REPOLARISATION ABNORMALITY [None]
  - HYPERTROPHIC CARDIOMYOPATHY [None]
  - OFF LABEL USE [None]
  - OVERDOSE [None]
